FAERS Safety Report 21081979 (Version 1)
Quarter: 2022Q3

REPORT INFORMATION
  Report Type: Spontaneous
  Country: FR (occurrence: FR)
  Receive Date: 20220714
  Receipt Date: 20220714
  Transmission Date: 20221027
  Serious: Yes (Hospitalization)
  Sender: FDA-Public Use
  Company Number: None

PATIENT
  Age: 60 Year
  Sex: Male
  Weight: 62 kg

DRUGS (3)
  1. OXYCODONE HYDROCHLORIDE [Suspect]
     Active Substance: OXYCODONE HYDROCHLORIDE
     Indication: Cancer pain
     Dosage: UNK (STRENGTH: 5 MG)
     Route: 065
     Dates: start: 20220322
  2. FENTANYL [Suspect]
     Active Substance: FENTANYL
     Indication: Cancer pain
     Dosage: 1 DOSAGE FORM, Q72H [ 25 MICROGRAMS/HOUR (4.2 MG/10.5 CM?), PATCH]
     Route: 065
     Dates: start: 20220322
  3. FENTANYL [Suspect]
     Active Substance: FENTANYL
     Dosage: 1 DOSAGE FORM, Q72H [12 MICROGRAMS/HOUR (2.1 MG (MILLIGRAM)/5.25 CM? (SQUARE CENTIMETER)) PATCH]
     Route: 065
     Dates: start: 20220322

REACTIONS (1)
  - Intestinal pseudo-obstruction [Recovering/Resolving]

NARRATIVE: CASE EVENT DATE: 20220525
